FAERS Safety Report 6328553-7 (Version None)
Quarter: 2009Q3

REPORT INFORMATION
  Report Type: 
  Country: None (occurrence: None)
  Receive Date: 20090825
  Receipt Date: 20090825
  Transmission Date: 20100115
  Serious: Yes (Hospitalization)
  Sender: FDA-Public Use
  Company Number: None

PATIENT
  Sex: Female

DRUGS (1)
  1. GLEEVEC [Suspect]
     Indication: MYELOID LEUKAEMIA
     Dosage: 400MG QD PO
     Route: 048
     Dates: start: 20090325, end: 20090722

REACTIONS (2)
  - RECTAL HAEMORRHAGE [None]
  - VAGINAL HAEMORRHAGE [None]
